FAERS Safety Report 9166480 (Version 1)
Quarter: 2013Q1

REPORT INFORMATION
  Report Type: Report from Study
  Country: CA (occurrence: CA)
  Receive Date: 20130315
  Receipt Date: 20130315
  Transmission Date: 20140127
  Serious: Yes (Other)
  Sender: FDA-Public Use
  Company Number: CA-JNJFOC-20130301651

PATIENT
  Age: 30 Year
  Sex: Male
  Weight: 81.3 kg

DRUGS (1)
  1. REMICADE [Suspect]
     Indication: COLITIS ULCERATIVE
     Route: 042
     Dates: start: 201001

REACTIONS (2)
  - Haematochezia [Unknown]
  - Abdominal pain [Unknown]
